FAERS Safety Report 19870078 (Version 3)
Quarter: 2021Q3

REPORT INFORMATION
  Report Type: Report from Study
  Country: FR (occurrence: FR)
  Receive Date: 20210922
  Receipt Date: 20210930
  Transmission Date: 20211014
  Serious: Yes (Hospitalization)
  Sender: FDA-Public Use
  Company Number: FR-ELI_LILLY_AND_COMPANY-FR202109006560

PATIENT
  Sex: Male
  Weight: 56 kg

DRUGS (11)
  1. AMLOR [Concomitant]
     Active Substance: AMLODIPINE BESYLATE
     Dosage: 5 MG, DAILY (1 CAPSULE IN THE MORNING)
     Route: 065
  2. NOVOMIX [Concomitant]
     Active Substance: INSULIN ASPART
     Dosage: 6 INTERNATIONAL UNIT, DAILY (6 UI IN THE MORNING)
     Route: 065
  3. NOVOMIX [Concomitant]
     Active Substance: INSULIN ASPART
     Dosage: 20 INTERNATIONAL UNIT, DAILY (20 UI AT MIDDAY)
     Route: 065
  4. ETESEVIMAB. [Suspect]
     Active Substance: ETESEVIMAB
     Indication: COVID-19
     Dosage: UNK UNK, UNKNOWN
     Route: 065
     Dates: start: 20210415
  5. TAHOR [Concomitant]
     Active Substance: ATORVASTATIN CALCIUM
     Dosage: 20 MG, DAILY (1 TABLET IN THE EVENING)
     Route: 065
  6. LASILIX [FUROSEMIDE] [Concomitant]
     Active Substance: FUROSEMIDE
     Dosage: 40 MG, DAILY (1 TABLET IN THE MORNING)
     Route: 065
  7. NOVOMIX [Concomitant]
     Active Substance: INSULIN ASPART
     Dosage: 16 INTERNATIONAL UNIT, DAILY (16 UI IN THE EVENING)
     Route: 065
  8. BAMLANIVIMAB. [Suspect]
     Active Substance: BAMLANIVIMAB
     Indication: COVID-19
     Dosage: UNK UNK, UNKNOWN
     Route: 065
     Dates: start: 20210415
  9. ARAVA [Concomitant]
     Active Substance: LEFLUNOMIDE
     Dosage: 20 MG, DAILY (1 TABLET IN THE MORNING)
     Route: 065
  10. CORTANCYL [Concomitant]
     Active Substance: PREDNISONE
     Dosage: 5 MG, DAILY (1 TABLET IN THE MORNING)
     Route: 065
  11. NEORAL [Concomitant]
     Active Substance: CYCLOSPORINE
     Dosage: 75 MG, BID (1 SOFT CAPSULE IN THE MORNING AND IN THE EVENING)
     Route: 065

REACTIONS (6)
  - Acute kidney injury [Recovered/Resolved]
  - Bradycardia [Unknown]
  - Stasis dermatitis [Unknown]
  - Diarrhoea [Unknown]
  - COVID-19 [Recovered/Resolved]
  - Hyperthermia [Recovered/Resolved]

NARRATIVE: CASE EVENT DATE: 20210415
